FAERS Safety Report 6073502-2 (Version None)
Quarter: 2009Q1

REPORT INFORMATION
  Report Type: 
  Country: None (occurrence: None)
  Receive Date: 20090211
  Receipt Date: 20090204
  Transmission Date: 20090719
  Serious: Yes (Hospitalization)
  Sender: FDA-Public Use
  Company Number: FR-BAYER-200911322GPV

PATIENT
  Age: 60 Year
  Sex: Female
  Weight: 100 kg

DRUGS (8)
  1. SORAFENIB [Suspect]
     Indication: ANGIOSARCOMA
     Dosage: TOTAL DAILY DOSE: 800 MG
     Route: 048
     Dates: end: 20090109
  2. BI-PROFENID [Concomitant]
     Indication: OSTEOARTHRITIS
     Route: 065
  3. ART [DIACEREIN] [Concomitant]
     Indication: OSTEOARTHRITIS
     Route: 065
  4. ATENOLOL [Concomitant]
     Indication: HYPERTENSION
     Route: 065
  5. HYTACAND [Concomitant]
     Indication: HYPERTENSION
     Route: 065
  6. LAMALINE (PARACETAMOL AND OPIUM) [Concomitant]
     Indication: OSTEOARTHRITIS
     Route: 065
  7. SIFROL [Concomitant]
     Indication: PARKINSON'S DISEASE
     Route: 065
  8. OMEPRAZOLE [Concomitant]
     Indication: DRUG USE FOR UNKNOWN INDICATION
     Route: 065

REACTIONS (3)
  - PELVIC VENOUS THROMBOSIS [None]
  - PULMONARY EMBOLISM [None]
  - TUMOUR HAEMORRHAGE [None]
